FAERS Safety Report 8275062-4 (Version None)
Quarter: 2012Q2

REPORT INFORMATION
  Report Type: 
  Country: None (occurrence: None)
  Receive Date: 20120411
  Receipt Date: 20120410
  Transmission Date: 20120825
  Serious: No
  Sender: FDA-Public Use
  Company Number: US-B.I. PHARMACEUTICALS,INC./RIDGEFIELD-2012-BP-06757BP

PATIENT
  Sex: Female

DRUGS (7)
  1. BISOPROLOL FUMARATE [Concomitant]
     Indication: CARDIOVASCULAR EVENT PROPHYLAXIS
     Dosage: 10 MG
     Route: 048
  2. SYNTHROID [Concomitant]
     Indication: HYPOTHYROIDISM
     Dosage: 75 MCG
     Route: 048
  3. QUIINAPRIL [Concomitant]
     Indication: ANGIOTENSIN CONVERTING ENZYME
     Dosage: 20 MG
     Route: 048
  4. TRADJENTA [Suspect]
     Indication: TYPE 2 DIABETES MELLITUS
     Dosage: 5 MG
     Dates: start: 20120320
  5. COUMADIN [Concomitant]
     Indication: HEART RATE INCREASED
     Dosage: 7 MG
     Route: 048
  6. COUMADIN [Concomitant]
     Indication: HEART RATE IRREGULAR
  7. TRADJENTA [Suspect]
     Dates: start: 20120404

REACTIONS (3)
  - BONE PAIN [None]
  - ARTHRALGIA [None]
  - POLLAKIURIA [None]
